FAERS Safety Report 13025642 (Version 1)
Quarter: 2016Q4

REPORT INFORMATION
  Report Type: Spontaneous
  Country: US (occurrence: US)
  Receive Date: 20161214
  Receipt Date: 20161214
  Transmission Date: 20170207
  Serious: Yes (Other)
  Sender: FDA-Public Use
  Company Number: US-TESARO INC.-TS50-00247-2016USA

PATIENT
  Sex: Female

DRUGS (2)
  1. VARUBI [Suspect]
     Active Substance: ROLAPITANT
     Indication: NAUSEA
     Route: 048
  2. VARUBI [Suspect]
     Active Substance: ROLAPITANT
     Indication: VOMITING

REACTIONS (10)
  - Dehydration [Unknown]
  - Diabetes mellitus [Unknown]
  - Neutropenia [Unknown]
  - Anxiety [Unknown]
  - Abdominal pain [Unknown]
  - Depression [Unknown]
  - Vitamin D deficiency [Unknown]
  - Fear [Unknown]
  - Diarrhoea [Unknown]
  - Hypokalaemia [Unknown]
